FAERS Safety Report 16144288 (Version 1)
Quarter: 2019Q2

REPORT INFORMATION
  Report Type: Report from Study
  Country: None (occurrence: BR)
  Receive Date: 20190401
  Receipt Date: 20190401
  Transmission Date: 20190711
  Serious: Yes (Other)
  Sender: FDA-Public Use
  Company Number: BR-ABBVIE-19K-020-2724985-00

PATIENT
  Sex: Male
  Weight: 50 kg

DRUGS (5)
  1. HUMIRA [Suspect]
     Active Substance: ADALIMUMAB
     Indication: ANKYLOSING SPONDYLITIS
     Route: 058
     Dates: start: 20140623
  2. HUMIRA [Suspect]
     Active Substance: ADALIMUMAB
     Route: 058
     Dates: end: 20190311
  3. ENALAMED [Concomitant]
     Indication: HYPERTENSION
     Dosage: 3 TABLETS IN THE MORNING AND 3 TABLETS IN THE EVENING
  4. PHENOBARBITAL. [Concomitant]
     Active Substance: PHENOBARBITAL
     Indication: EPILEPSY
  5. VALPROIC ACID. [Concomitant]
     Active Substance: VALPROIC ACID
     Indication: EPILEPSY

REACTIONS (1)
  - Gastric cancer [Not Recovered/Not Resolved]

NARRATIVE: CASE EVENT DATE: 20190308
